FAERS Safety Report 15324236 (Version 1)
Quarter: 2018Q3

REPORT INFORMATION
  Report Type: Spontaneous
  Country: US (occurrence: US)
  Receive Date: 20180828
  Receipt Date: 20180828
  Transmission Date: 20181010
  Serious: Yes (Other)
  Sender: FDA-Public Use
  Company Number: US-BRISTOL-MYERS SQUIBB COMPANY-BMS-2018-079314

PATIENT
  Age: 96 Year
  Sex: Female

DRUGS (1)
  1. ELIQUIS [Suspect]
     Active Substance: APIXABAN
     Indication: PERIPHERAL ARTERY THROMBOSIS
     Dosage: 2.5 MG, BID
     Route: 048

REACTIONS (3)
  - Animal scratch [Unknown]
  - Traumatic haemorrhage [Unknown]
  - Product use in unapproved indication [Unknown]
